FAERS Safety Report 8381552-6 (Version None)
Quarter: 2012Q2

REPORT INFORMATION
  Report Type: 
  Country: None (occurrence: None)
  Receive Date: 20120523
  Receipt Date: 20120509
  Transmission Date: 20120825
  Serious: Yes (Other)
  Sender: FDA-Public Use
  Company Number: CHPA2012US002223

PATIENT
  Age: 56 Year
  Sex: Female

DRUGS (4)
  1. LISINOPRIL [Concomitant]
     Indication: HYPERTENSION
     Dosage: 1 TIME PER DAY
     Dates: start: 20060101
  2. DRUG THERAPY NOS [Concomitant]
     Indication: GLAUCOMA
     Dosage: 1 DF, QD
     Dates: start: 20080101
  3. EXCEDRIN (MIGRAINE) [Suspect]
     Indication: MIGRAINE
     Dosage: 1 DF, Q6H
     Route: 048
     Dates: start: 20090101, end: 20111201
  4. GLYBURIDE [Concomitant]
     Indication: DIABETES MELLITUS
     Dosage: 2.5/500 MG, BID
     Dates: start: 20060101

REACTIONS (3)
  - HALLUCINATION, VISUAL [None]
  - CRYING [None]
  - OVERDOSE [None]
